FAERS Safety Report 9854027 (Version 2)
Quarter: 2014Q1

REPORT INFORMATION
  Report Type: Spontaneous
  Country: US (occurrence: US)
  Receive Date: 20140129
  Receipt Date: 20140221
  Transmission Date: 20141002
  Serious: No
  Sender: FDA-Public Use
  Company Number: US-009507513-1401USA013620

PATIENT
  Sex: 0

DRUGS (7)
  1. REBETOL [Suspect]
     Indication: HEPATITIS C
     Dosage: 800-1200 MG/DAY IN TWO DIVIDED DOSES
     Route: 048
  2. PEGINTRON [Suspect]
     Indication: HEPATITIS C
     Dosage: 1.5 MG/KG BODY WEIGHT PER WEEK
  3. PEGINTERFERON ALFA-2A [Suspect]
     Indication: HEPATITIS C
     Dosage: 180 MICROGRAM, PER WEEK
  4. TACROLIMUS [Concomitant]
  5. MYCOPHENOLATE SODIUM [Concomitant]
  6. PREDNISONE [Concomitant]
     Route: 048
  7. CYCLOSPORINE [Concomitant]

REACTIONS (1)
  - Colitis ulcerative [Unknown]
